FAERS Safety Report 5513096-0 (Version None)
Quarter: 2007Q4

REPORT INFORMATION
  Report Type: 
  Country: None (occurrence: None)
  Receive Date: 20071112
  Receipt Date: 20071108
  Transmission Date: 20080405
  Serious: Yes (Death, Hospitalization)
  Sender: FDA-Public Use
  Company Number: US-BAXTER-2007BH008719

PATIENT
  Age: 64 Year
  Sex: Male

DRUGS (2)
  1. DIANEAL [Suspect]
     Indication: RENAL FAILURE CHRONIC
     Dosage: DOSE UNIT:UNKNOWN
     Route: 033
     Dates: start: 20051101, end: 20070924
  2. DIANEAL [Suspect]
     Indication: RENAL FAILURE CHRONIC
     Dosage: DOSE UNIT:UNKNOWN
     Route: 033
     Dates: start: 20051101, end: 20070924

REACTIONS (3)
  - BLOOD PARATHYROID HORMONE INCREASED [None]
  - MULTI-ORGAN FAILURE [None]
  - POOR PERIPHERAL CIRCULATION [None]
